FAERS Safety Report 9920590 (Version 1)
Quarter: 2014Q1

REPORT INFORMATION
  Report Type: Spontaneous
  Country: US (occurrence: US)
  Receive Date: 20140224
  Receipt Date: 20140224
  Transmission Date: 20141002
  Serious: No
  Sender: FDA-Public Use
  Company Number: US-NOVEN-13US008495

PATIENT
  Sex: Female

DRUGS (1)
  1. MINIVELLE [Suspect]
     Dosage: 0.05 MG, QD
     Dates: start: 201304, end: 201312

REACTIONS (4)
  - Application site pruritus [Recovered/Resolved]
  - Application site urticaria [Recovered/Resolved]
  - Drug hypersensitivity [Recovered/Resolved]
  - Application site erythema [Recovered/Resolved]
